FAERS Safety Report 6713902-8 (Version None)
Quarter: 2010Q2

REPORT INFORMATION
  Report Type: 
  Country: None (occurrence: None)
  Receive Date: 20100506
  Receipt Date: 20100426
  Transmission Date: 20101027
  Serious: Yes (Other)
  Sender: FDA-Public Use
  Company Number: US-PFIZER INC-2008043449

PATIENT
  Sex: Female
  Weight: 66.678 kg

DRUGS (10)
  1. LYRICA [Suspect]
  2. LYRICA [Suspect]
     Dosage: UNK
  3. GABAPENTIN [Suspect]
     Dosage: UNK
  4. DILANTIN-125 [Suspect]
     Indication: CONVULSION
     Dosage: 200 MG, 2X/DAY
     Dates: start: 20030101
  5. CELEBREX [Suspect]
     Indication: ADENOMATOUS POLYPOSIS COLI
     Dosage: UNK
     Dates: start: 20030101
  6. CELEBREX [Suspect]
     Indication: ARTHRITIS
  7. PREDNISONE [Concomitant]
  8. PREVACID [Concomitant]
  9. ELAVIL [Concomitant]
  10. TRAZODONE [Concomitant]
     Indication: SLEEP DISORDER

REACTIONS (9)
  - ARTHRITIS [None]
  - DRUG DISPENSING ERROR [None]
  - DRUG INEFFECTIVE [None]
  - GAIT DISTURBANCE [None]
  - GINGIVAL DISORDER [None]
  - INSOMNIA [None]
  - MENISCUS LESION [None]
  - TOOTH LOSS [None]
  - TOOTHACHE [None]
